FAERS Safety Report 7840484 (Version 3)
Quarter: 2012Q4

REPORT INFORMATION
  Report Type: 
  Country: US (occurrence: US)
  Receive Date: 20110304
  Receipt Date: 20120920
  Transmission Date: 20130627
  Serious: Yes (Hospitalization, Disabling)
  Sender: FDA-Public Use
  Company Number: US-BAYER-2011-019820

PATIENT
  Age: 47 Year
  Sex: Female
  Weight: 96.6 kg

DRUGS (9)
  1. YAZ [Suspect]
     Indication: CONTRACEPTION
     Dosage: UNK
     Dates: start: 200802, end: 200903
  2. FLUOCINONIDE [Concomitant]
     Dosage: 0.05 %, UNK
     Dates: start: 20090216
  3. METHYLPREDNISOLONE [Concomitant]
  4. CALCIUM WITH VITAMIN D [Concomitant]
  5. ASPIRIN [Concomitant]
     Dosage: 325 mg, daily
  6. AUGMENTIN [Concomitant]
  7. SYNTHROID [Concomitant]
     Indication: BLOOD THYROID STIMULATING HORMONE INCREASED
     Dosage: 50 ?g, daily
  8. VALIUM [Concomitant]
     Indication: DIZZINESS
     Dosage: UNK UNK, HS
  9. VALIUM [Concomitant]
     Indication: DIZZINESS
     Dosage: 2.5 mg, UNK

REACTIONS (12)
  - Brain stem stroke [None]
  - Brain injury [None]
  - Injury [None]
  - Pain [None]
  - General physical health deterioration [None]
  - Anxiety [None]
  - Paraesthesia [None]
  - Hypoaesthesia [None]
  - Vision blurred [None]
  - Facial paresis [None]
  - Fatigue [None]
  - Motor dysfunction [None]
